FAERS Safety Report 17548016 (Version 3)
Quarter: 2021Q4

REPORT INFORMATION
  Report Type: Report from Study
  Country: PR (occurrence: PR)
  Receive Date: 20200316
  Receipt Date: 20211213
  Transmission Date: 20220304
  Serious: Yes (Hospitalization, Other)
  Sender: FDA-Public Use
  Company Number: PR-ABBVIE-20K-131-3302618-00

PATIENT
  Age: 49 Year
  Sex: Female
  Weight: 88.530 kg

DRUGS (8)
  1. HUMIRA [Suspect]
     Active Substance: ADALIMUMAB
     Indication: Rheumatoid arthritis
     Route: 058
     Dates: start: 201004, end: 201109
  2. HUMIRA [Suspect]
     Active Substance: ADALIMUMAB
     Route: 058
     Dates: start: 201801
  3. HUMIRA [Suspect]
     Active Substance: ADALIMUMAB
     Indication: Rheumatoid arthritis
     Route: 058
     Dates: start: 20191105, end: 202001
  4. HUMIRA [Suspect]
     Active Substance: ADALIMUMAB
     Route: 058
     Dates: start: 2020, end: 202110
  5. ELASOMERAN [Concomitant]
     Active Substance: ELASOMERAN
     Indication: COVID-19
     Dosage: 1ST DOSE
     Route: 030
     Dates: start: 20210804, end: 20210804
  6. ELASOMERAN [Concomitant]
     Active Substance: ELASOMERAN
     Dosage: 2ND DOSE
     Route: 030
     Dates: start: 20210910, end: 20210910
  7. ELASOMERAN [Concomitant]
     Active Substance: ELASOMERAN
     Indication: COVID-19
     Route: 030
     Dates: start: 20210804, end: 20210804
  8. ELASOMERAN [Concomitant]
     Active Substance: ELASOMERAN
     Route: 030
     Dates: start: 20210910, end: 20210910

REACTIONS (10)
  - Ligament rupture [Recovered/Resolved]
  - Skin discolouration [Unknown]
  - Ankle fracture [Not Recovered/Not Resolved]
  - Wound infection [Not Recovered/Not Resolved]
  - Wound infection [Recovered/Resolved]
  - Animal bite [Recovered/Resolved]
  - Wound [Unknown]
  - Wound complication [Not Recovered/Not Resolved]
  - Impaired healing [Not Recovered/Not Resolved]
  - Osteomyelitis [Recovered/Resolved]

NARRATIVE: CASE EVENT DATE: 20200101
